FAERS Safety Report 20618901 (Version 1)
Quarter: 2022Q1

REPORT INFORMATION
  Report Type: Report from Study
  Country: CA (occurrence: CA)
  Receive Date: 20220322
  Receipt Date: 20220322
  Transmission Date: 20220423
  Serious: Yes (Hospitalization)
  Sender: FDA-Public Use
  Company Number: CA-BIOGEN-2022BI01107495

PATIENT
  Sex: Female

DRUGS (1)
  1. DALFAMPRIDINE [Suspect]
     Active Substance: DALFAMPRIDINE
     Indication: Multiple sclerosis
     Route: 048
     Dates: start: 20171011

REACTIONS (7)
  - Parathyroid tumour benign [Unknown]
  - Oesophageal achalasia [Unknown]
  - Product dose omission issue [Unknown]
  - Blood calcium decreased [Unknown]
  - Malnutrition [Unknown]
  - Procedural pain [Unknown]
  - Nausea [Unknown]
